FAERS Safety Report 5898230-5 (Version None)
Quarter: 2008Q3

REPORT INFORMATION
  Report Type: 
  Country: None (occurrence: None)
  Receive Date: 20080925
  Receipt Date: 20080917
  Transmission Date: 20090109
  Serious: Yes (Life-Threatening, Hospitalization)
  Sender: FDA-Public Use
  Company Number: US-JNJFOC-20070306339

PATIENT
  Sex: Female
  Weight: 64 kg

DRUGS (2)
  1. ORTHO EVRA [Suspect]
     Indication: CONTRACEPTION
     Route: 062
  2. LORTAB [Concomitant]

REACTIONS (14)
  - ABORTION INCOMPLETE [None]
  - ANTIPHOSPHOLIPID ANTIBODIES POSITIVE [None]
  - BRAIN HERNIATION [None]
  - BRAIN OEDEMA [None]
  - DEEP VEIN THROMBOSIS [None]
  - DRUG EXPOSURE DURING PREGNANCY [None]
  - EMBOLIC STROKE [None]
  - ENCEPHALOMALACIA [None]
  - HYPERCOAGULATION [None]
  - LOSS OF CONSCIOUSNESS [None]
  - MUSCULOSKELETAL CHEST PAIN [None]
  - PREGNANCY WITH INJECTABLE CONTRACEPTIVE [None]
  - PROCEDURAL COMPLICATION [None]
  - SINUS TACHYCARDIA [None]
